FAERS Safety Report 11794891 (Version 3)
Quarter: 2015Q4

REPORT INFORMATION
  Report Type: Spontaneous
  Country: IT (occurrence: IT)
  Receive Date: 20151202
  Receipt Date: 20151231
  Transmission Date: 20160305
  Serious: Yes (Other)
  Sender: FDA-Public Use
  Company Number: IT-SA-2015SA193161

PATIENT
  Sex: Female

DRUGS (11)
  1. FUROSEMIDE. [Suspect]
     Active Substance: FUROSEMIDE
     Route: 048
  2. NORVASC [Suspect]
     Active Substance: AMLODIPINE BESYLATE
     Route: 048
  3. EBIXA [Suspect]
     Active Substance: MEMANTINE HYDROCHLORIDE
     Route: 048
  4. PANTOPRAZOLE [Suspect]
     Active Substance: PANTOPRAZOLE SODIUM
     Route: 048
  5. ALLOPURINOL. [Suspect]
     Active Substance: ALLOPURINOL
     Route: 048
  6. KANRENOL [Suspect]
     Active Substance: CANRENOATE POTASSIUM
     Route: 048
  7. GLICLAZIDE [Suspect]
     Active Substance: GLICLAZIDE
     Route: 048
  8. RAMIPRIL. [Suspect]
     Active Substance: RAMIPRIL
     Route: 065
  9. RIVASTIGMINE. [Suspect]
     Active Substance: RIVASTIGMINE
     Route: 048
  10. SOTALOL. [Suspect]
     Active Substance: SOTALOL
     Route: 048
  11. CYMBALTA [Suspect]
     Active Substance: DULOXETINE HYDROCHLORIDE
     Dosage: GASTRO-RESISTANT HARD CAPSULES - ORAL USE
     Route: 048

REACTIONS (3)
  - Extra dose administered [Unknown]
  - Malaise [Recovering/Resolving]
  - Vomiting [Recovering/Resolving]

NARRATIVE: CASE EVENT DATE: 20151102
